FAERS Safety Report 19743399 (Version 1)
Quarter: 2021Q3

REPORT INFORMATION
  Report Type: Spontaneous
  Country: JP (occurrence: JP)
  Receive Date: 20210824
  Receipt Date: 20210824
  Transmission Date: 20211014
  Serious: Yes (Other)
  Sender: FDA-Public Use
  Company Number: JP-PFM-2021-08000

PATIENT
  Age: 70 Year
  Sex: Male

DRUGS (5)
  1. WARFARIN [Concomitant]
     Active Substance: WARFARIN
     Indication: ATRIAL FIBRILLATION
     Dosage: 2 MG, 24 H
     Route: 065
  2. DIGOXIN. [Suspect]
     Active Substance: DIGOXIN
     Indication: VENTRICULAR EXTRASYSTOLES
     Dosage: 0.1 MG, 24 HR
     Route: 065
  3. PROPRANOLOL HYDROCHLORIDE. [Suspect]
     Active Substance: PROPRANOLOL HYDROCHLORIDE
     Indication: VENTRICULAR EXTRASYSTOLES
     Route: 065
  4. TELMISARTAN. [Concomitant]
     Active Substance: TELMISARTAN
     Indication: ATRIAL FIBRILLATION
     Dosage: 40 MG, 24 H
     Route: 065
  5. CARVEDILOL. [Suspect]
     Active Substance: CARVEDILOL
     Indication: HEART RATE ABNORMAL
     Dosage: 2.5 MG, 24 H
     Route: 065

REACTIONS (7)
  - Accessory cardiac pathway [Recovered/Resolved]
  - Palpitations [Recovered/Resolved]
  - Heart rate increased [Recovered/Resolved]
  - Cardiac failure [Recovered/Resolved]
  - Condition aggravated [Recovered/Resolved]
  - Electrocardiogram QRS complex prolonged [Recovered/Resolved]
  - Ventricular pre-excitation [Recovered/Resolved]
